FAERS Safety Report 6011257-8 (Version None)
Quarter: 2008Q4

REPORT INFORMATION
  Report Type: 
  Country: None (occurrence: None)
  Receive Date: 20081216
  Receipt Date: 20081204
  Transmission Date: 20090506
  Serious: Yes (Hospitalization)
  Sender: FDA-Public Use
  Company Number: 232585K08USA

PATIENT
  Age: 54 Year
  Sex: Male
  Weight: 97 kg

DRUGS (4)
  1. REBIF [Suspect]
     Indication: MULTIPLE SCLEROSIS
     Dosage: 44 MCG, 3 IN 1 WEEKS, SUBCUTANEOUS
     Route: 058
     Dates: start: 20080404
  2. ZOLOFT [Suspect]
  3. BACLOFEN [Concomitant]
  4. METFORMIN HCL [Concomitant]

REACTIONS (2)
  - PNEUMONIA [None]
  - SINUSITIS [None]
